FAERS Safety Report 15820518 (Version 1)
Quarter: 2019Q1

REPORT INFORMATION
  Report Type: Spontaneous
  Country: US (occurrence: US)
  Receive Date: 20190111
  Receipt Date: 20190111
  Transmission Date: 20190417
  Serious: No
  Sender: FDA-Public Use
  Company Number: None

PATIENT
  Age: 58 Month
  Sex: Female
  Weight: 72 kg

DRUGS (1)
  1. HUMERA [Suspect]
     Active Substance: ADALIMUMAB
     Indication: CROHN^S DISEASE
     Dosage: ?          QUANTITY:2 INJECTION(S);OTHER FREQUENCY:2XA MONTH;OTHER ROUTE:INJECTION?
     Dates: start: 20160708

REACTIONS (2)
  - Urinary tract infection [None]
  - Blood urine present [None]

NARRATIVE: CASE EVENT DATE: 20190106
